FAERS Safety Report 23534871 (Version 1)
Quarter: 2024Q1

REPORT INFORMATION
  Report Type: Spontaneous
  Country: US (occurrence: US)
  Receive Date: 20240217
  Receipt Date: 20240217
  Transmission Date: 20240410
  Serious: Yes (Other)
  Sender: FDA-Public Use
  Company Number: US-Accord-407011

PATIENT
  Sex: Male

DRUGS (3)
  1. TACROLIMUS [Suspect]
     Active Substance: TACROLIMUS
     Indication: Postoperative care
     Dosage: CURRENTLY 2MG PER DAY
     Route: 048
  2. SIROLIMUS [Concomitant]
     Active Substance: SIROLIMUS
  3. TACROLIMUS [Suspect]
     Active Substance: TACROLIMUS
     Indication: Postoperative care
     Dosage: 4 MG DAILY
     Route: 048

REACTIONS (5)
  - Tremor [Unknown]
  - Mitral valve incompetence [Unknown]
  - Cachexia [Unknown]
  - Neuropathy peripheral [Unknown]
  - Blood potassium increased [Unknown]
